FAERS Safety Report 5197602-4 (Version None)
Quarter: 2007Q1

REPORT INFORMATION
  Report Type: 
  Country: None (occurrence: None)
  Receive Date: 20070103
  Receipt Date: 20070102
  Transmission Date: 20070707
  Serious: Yes (Other)
  Sender: FDA-Public Use
  Company Number: JP-BOEHRINGER INGELHEIM PHARMACEUTICALS, INC.-2007-DE-00015GD

PATIENT
  Age: 73 Year
  Sex: Female

DRUGS (2)
  1. PRAMIPEXOLE DIHYDROCHLORIDE [Suspect]
     Indication: PARKINSON'S DISEASE
  2. PAROXETINE HCL [Suspect]
     Indication: DEPRESSION

REACTIONS (1)
  - NEUROLEPTIC MALIGNANT SYNDROME [None]
